FAERS Safety Report 12990573 (Version 1)
Quarter: 2016Q4

REPORT INFORMATION
  Report Type: Spontaneous
  Country: US (occurrence: US)
  Receive Date: 20161201
  Receipt Date: 20161201
  Transmission Date: 20170207
  Serious: No
  Sender: FDA-Public Use
  Company Number: None

PATIENT

DRUGS (1)
  1. OMIDRIA [Suspect]
     Active Substance: KETOROLAC\PHENYLEPHRINE
     Dosage: OMIDRIA PHENYLEPHRINE AND KETOROLAC - DOSAGE FORM - SOLUTION - ADM. ROUTE - OPTHALMIC
     Route: 047

REACTIONS (1)
  - Product name confusion [None]
